FAERS Safety Report 5876407-2 (Version None)
Quarter: 2008Q3

REPORT INFORMATION
  Report Type: 
  Country: None (occurrence: None)
  Receive Date: 20080910
  Receipt Date: 20080905
  Transmission Date: 20090109
  Serious: Yes (Death, Life-Threatening, Hospitalization)
  Sender: FDA-Public Use
  Company Number: DE-BRISTOL-MYERS SQUIBB COMPANY-14130306

PATIENT
  Age: 62 Year
  Sex: Female
  Weight: 60 kg

DRUGS (9)
  1. ERBITUX [Suspect]
     Indication: COLORECTAL CANCER METASTATIC
     Route: 041
     Dates: start: 20080227, end: 20080227
  2. FLUOROURACIL [Suspect]
     Indication: COLORECTAL CANCER METASTATIC
     Route: 041
     Dates: start: 20080227, end: 20080227
  3. IRINOTECAN HCL [Suspect]
     Indication: COLORECTAL CANCER METASTATIC
     Dates: start: 20050101
  4. LEUCOVORIN CALCIUM [Suspect]
     Indication: COLORECTAL CANCER METASTATIC
     Dates: start: 20050101
  5. CELEBREX [Suspect]
  6. NOVAMIN [Suspect]
     Indication: COLORECTAL CANCER METASTATIC
     Route: 048
  7. OXALIPLATIN [Suspect]
     Indication: COLORECTAL CANCER METASTATIC
     Route: 041
     Dates: start: 20080227, end: 20080227
  8. HEPARIN CALCIUM [Suspect]
  9. ONDANSETRON [Concomitant]

REACTIONS (1)
  - THROMBOCYTOPENIA [None]
